FAERS Safety Report 8021316-6 (Version None)
Quarter: 2012Q1

REPORT INFORMATION
  Report Type: 
  Country: None (occurrence: None)
  Receive Date: 20120104
  Receipt Date: 20111223
  Transmission Date: 20120608
  Serious: Yes (Hospitalization, Other)
  Sender: FDA-Public Use
  Company Number: CH-AMGEN-CHESP2011057823

PATIENT
  Age: 51 Year
  Sex: Female
  Weight: 53 kg

DRUGS (7)
  1. PROLIA [Suspect]
     Indication: OSTEOPOROSIS
     Dosage: 60 MG, Q6MO
     Route: 058
     Dates: start: 20101101
  2. OVESTIN [Concomitant]
     Indication: VULVOVAGINAL DRYNESS
     Dosage: UNK UNK, QWK
     Route: 067
     Dates: start: 19990101
  3. CALCIUM ACETATE [Concomitant]
     Indication: OSTEOPOROSIS
     Dosage: UNK
     Route: 048
     Dates: start: 20051101
  4. DIVIGEL [Concomitant]
     Indication: MENOPAUSAL SYMPTOMS
     Dosage: UNK UNK, 2 TIMES/WK
     Route: 062
     Dates: start: 19990101
  5. PROGESTERONE [Concomitant]
     Indication: MENOPAUSAL SYMPTOMS
     Dosage: UNK
     Route: 067
     Dates: start: 19990101
  6. PROLIA [Suspect]
     Dosage: 60 MG, Q6MO
     Route: 058
     Dates: start: 20110501
  7. VITAMIN D [Concomitant]
     Indication: OSTEOPOROSIS
     Dosage: UNK
     Route: 048
     Dates: start: 20051101

REACTIONS (1)
  - CATARACT [None]
